FAERS Safety Report 5263473-0 (Version None)
Quarter: 2007Q1

REPORT INFORMATION
  Report Type: 
  Country: None (occurrence: None)
  Receive Date: 20070313
  Receipt Date: 20070228
  Transmission Date: 20070707
  Serious: Yes (Hospitalization)
  Sender: FDA-Public Use
  Company Number: PHBS2007JP03832

PATIENT
  Age: 35 Year
  Sex: Male

DRUGS (8)
  1. TEGRETOL [Suspect]
     Dosage: 1000 MG/DAY
     Route: 048
  2. TEGRETOL [Suspect]
     Dosage: 1200 MG/DAY
     Route: 048
  3. TEGRETOL [Suspect]
     Dosage: 600 MG/DAY
     Route: 048
  4. TIMIPERONE [Concomitant]
  5. SULTOPRIDE HYDROCHLORIDE [Concomitant]
  6. LEVOMEPROMAZINE MALEATE [Concomitant]
  7. LITHIUM CARBONATE [Concomitant]
  8. HALOPERIDOL [Concomitant]

REACTIONS (6)
  - ARACHNOID CYST [None]
  - CONVULSION [None]
  - HYDROCEPHALUS [None]
  - ILEUS [None]
  - MEGACOLON [None]
  - PNEUMONIA ASPIRATION [None]
